FAERS Safety Report 6849888-5 (Version None)
Quarter: 2010Q3

REPORT INFORMATION
  Report Type: 
  Country: None (occurrence: None)
  Receive Date: 20100716
  Receipt Date: 20071006
  Transmission Date: 20110219
  Serious: No
  Sender: FDA-Public Use
  Company Number: US-PFIZER INC-2007084739

PATIENT
  Sex: Male
  Weight: 81.6 kg

DRUGS (9)
  1. CHANTIX [Suspect]
     Indication: SMOKING CESSATION THERAPY
     Route: 048
     Dates: start: 20070923
  2. OXYCODONE HCL [Concomitant]
  3. OXYCONTIN [Concomitant]
  4. CLONAZEPAM [Concomitant]
  5. KLONOPIN [Concomitant]
  6. DIAZEPAM [Concomitant]
  7. FLEXERIL [Concomitant]
  8. MONTELUKAST SODIUM [Concomitant]
  9. ALL OTHER THERAPEUTIC PRODUCTS [Concomitant]

REACTIONS (1)
  - WEIGHT INCREASED [None]
